FAERS Safety Report 7607667-5 (Version None)
Quarter: 2011Q3

REPORT INFORMATION
  Report Type: 
  Country: None (occurrence: None)
  Receive Date: 20110713
  Receipt Date: 20110403
  Transmission Date: 20111222
  Serious: Yes (Other)
  Sender: FDA-Public Use
  Company Number: PHHY2011US15109

PATIENT
  Sex: Female

DRUGS (7)
  1. RECLAST [Suspect]
     Dosage: 5 MG/100 ML ONCE YEARLY
     Route: 042
     Dates: start: 20090101
  2. METOPROLOL SUCCINATE [Concomitant]
     Dosage: 150 MG TWICE DAY
  3. LEVOXYL [Concomitant]
     Dosage: 1.67 MG
  4. DIOVAN [Concomitant]
     Dosage: 320 MG PER DAY
  5. PRAVASTATIN SODIUM [Concomitant]
     Dosage: UNK
  6. RECLAST [Suspect]
     Dosage: UNK
     Dates: start: 20100101
  7. SPIRIVA [Concomitant]
     Dosage: UNK

REACTIONS (2)
  - BONE DENSITY ABNORMAL [None]
  - PELVIC FRACTURE [None]
